FAERS Safety Report 20244339 (Version 2)
Quarter: 2023Q1

REPORT INFORMATION
  Report Type: Spontaneous
  Country: US (occurrence: US)
  Receive Date: 20211229
  Receipt Date: 20230106
  Transmission Date: 20230417
  Serious: Yes (Hospitalization, Other)
  Sender: FDA-Public Use
  Company Number: US-COOPERSURGICAL, INC.-US-2021CPS003002

PATIENT
  Sex: Female
  Weight: 58.957 kg

DRUGS (4)
  1. PARAGARD T 380A [Suspect]
     Active Substance: COPPER
     Indication: Contraception
     Dosage: UNK
     Route: 015
  2. VITAMIN D                          /00107901/ [Concomitant]
     Indication: Supplementation therapy
     Route: 065
  3. TURMERIC                           /01079601/ [Concomitant]
     Indication: Supplementation therapy
     Route: 065
  4. IRON [Concomitant]
     Active Substance: IRON
     Indication: Iron deficiency
     Route: 065

REACTIONS (6)
  - Pregnancy with contraceptive device [Recovered/Resolved]
  - Abortion spontaneous [Recovered/Resolved]
  - Drug ineffective [Unknown]
  - Device dislocation [Recovered/Resolved]
  - Device expulsion [Recovered/Resolved]
  - Vaginal haemorrhage [Recovered/Resolved]

NARRATIVE: CASE EVENT DATE: 20210101
